FAERS Safety Report 9661199 (Version 1)
Quarter: 2013Q4

REPORT INFORMATION
  Report Type: Spontaneous
  Country: IT (occurrence: IT)
  Receive Date: 20131031
  Receipt Date: 20131031
  Transmission Date: 20140711
  Serious: Yes (Other)
  Sender: FDA-Public Use
  Company Number: IT-TEVA-440607ISR

PATIENT
  Age: 73 Year
  Sex: Male
  Weight: 80 kg

DRUGS (3)
  1. FLUOROURACILE TEVA [Suspect]
     Indication: COLON CANCER
     Dosage: 6550 MILLIGRAM DAILY;
     Route: 042
     Dates: start: 20130710, end: 20130808
  2. IRINOTECANO KABI [Suspect]
     Indication: COLON CANCER
     Dosage: 350 MILLIGRAM DAILY;
     Route: 042
     Dates: start: 20130808, end: 20130808
  3. AVASTIN [Concomitant]
     Dosage: 400 MILLIGRAM DAILY;
     Route: 042
     Dates: start: 20130710, end: 20130808

REACTIONS (2)
  - Diarrhoea [Recovered/Resolved]
  - Pyrexia [Recovered/Resolved]
